FAERS Safety Report 13581733 (Version 2)
Quarter: 2017Q3

REPORT INFORMATION
  Report Type: Spontaneous
  Country: FR (occurrence: FR)
  Receive Date: 20170525
  Receipt Date: 20170703
  Transmission Date: 20171127
  Serious: Yes (Other)
  Sender: FDA-Public Use
  Company Number: FR-AMGEN-FRASP2017077920

PATIENT
  Sex: Female

DRUGS (4)
  1. PROLIA [Suspect]
     Active Substance: DENOSUMAB
     Indication: PRODUCT USED FOR UNKNOWN INDICATION
     Dosage: UNK
     Route: 065
     Dates: start: 2016
  2. DOLIPRANE [Concomitant]
     Active Substance: ACETAMINOPHEN
     Indication: POLYARTHRITIS
  3. METOJECT [Concomitant]
     Active Substance: METHOTREXATE SODIUM
     Indication: POLYARTHRITIS
     Dosage: UNK
     Dates: start: 2010
  4. FOLDINE [Concomitant]
     Indication: POLYARTHRITIS

REACTIONS (2)
  - Muscle spasms [Unknown]
  - Haemoglobin abnormal [Unknown]
